FAERS Safety Report 4789765-7 (Version None)
Quarter: 2005Q4

REPORT INFORMATION
  Report Type: 
  Country: None (occurrence: None)
  Receive Date: 20051006
  Receipt Date: 20050927
  Transmission Date: 20060501
  Serious: Yes (Hospitalization)
  Sender: FDA-Public Use
  Company Number: 2005UW14739

PATIENT
  Sex: Male

DRUGS (3)
  1. CRESTOR [Suspect]
     Route: 048
  2. EZETROL [Concomitant]
  3. LIPIDIL SUPRA [Concomitant]

REACTIONS (2)
  - HIGH DENSITY LIPOPROTEIN DECREASED [None]
  - TRANSIENT ISCHAEMIC ATTACK [None]
